FAERS Safety Report 5772372-7 (Version None)
Quarter: 2008Q2

REPORT INFORMATION
  Report Type: 
  Country: None (occurrence: None)
  Receive Date: 20080613
  Receipt Date: 20080604
  Transmission Date: 20081010
  Serious: Yes (Other)
  Sender: FDA-Public Use
  Company Number: US-ABBOTT-08P-163-0455158-00

PATIENT
  Age: 36 Year
  Sex: Female
  Weight: 59.928 kg

DRUGS (10)
  1. LUPRON [Suspect]
     Indication: IN VITRO FERTILISATION
     Dosage: 5 IU
     Route: 050
     Dates: start: 20070401, end: 20070501
  2. UROFOLLITROPIN [Suspect]
     Indication: ASSISTED FERTILISATION
     Route: 050
     Dates: start: 20070401, end: 20070501
  3. UROFOLLITROPIN [Suspect]
     Dates: start: 20080101
  4. MENOTROPINS [Suspect]
     Indication: IN VITRO FERTILISATION
     Route: 050
     Dates: start: 20070401, end: 20070501
  5. ESTRADIOL [Suspect]
     Indication: DRUG USE FOR UNKNOWN INDICATION
     Route: 048
     Dates: start: 20070101, end: 20070701
  6. CHORIONIC GONADTROPIN [Suspect]
     Indication: INFERTILITY
     Route: 030
     Dates: start: 20070501
  7. CHORIONIC GONADTROPIN [Suspect]
     Indication: IN VITRO FERTILISATION
     Dates: start: 20080404
  8. PROGESTERONE [Suspect]
     Indication: DRUG USE FOR UNKNOWN INDICATION
     Route: 050
     Dates: start: 20070101, end: 20070701
  9. ASPIRIN [Concomitant]
     Indication: COAGULOPATHY
  10. HEPARIN-FRACTION, SODIUM SALT [Concomitant]
     Indication: COAGULOPATHY
     Route: 050

REACTIONS (3)
  - ABORTION SPONTANEOUS [None]
  - BREAST TENDERNESS [None]
  - OVARIAN CYST [None]
